FAERS Safety Report 7623763-0 (Version None)
Quarter: 2011Q3

REPORT INFORMATION
  Report Type: 
  Country: None (occurrence: None)
  Receive Date: 20110720
  Receipt Date: 20110711
  Transmission Date: 20111222
  Serious: Yes (Hospitalization)
  Sender: FDA-Public Use
  Company Number: FR-GLAXOSMITHKLINE-B0732088A

PATIENT
  Sex: Male

DRUGS (14)
  1. PREDNISONE [Concomitant]
     Dosage: 1MG TWICE PER DAY
  2. CEFUROXIME [Suspect]
     Indication: NASOPHARYNGITIS
     Route: 048
     Dates: start: 20110329, end: 20110414
  3. ATROVENT [Concomitant]
     Dosage: .5MCG TWICE PER DAY
  4. ASPIRIN [Concomitant]
     Dosage: 75MG PER DAY
  5. POTASSIUM CHLORIDE [Concomitant]
  6. ATORVASTATIN CALCIUM [Concomitant]
     Dosage: 10MG PER DAY
  7. PREDNISOLONE [Suspect]
     Indication: NASOPHARYNGITIS
     Route: 048
     Dates: start: 20110329, end: 20110414
  8. LASIX [Concomitant]
     Dosage: 20MG PER DAY
  9. SYMBICORT [Concomitant]
     Dosage: 400MCG TWICE PER DAY
  10. OMEPRAZOLE [Concomitant]
     Dosage: 20MG PER DAY
  11. AMIODARONE HCL [Concomitant]
  12. PULMICORT [Concomitant]
     Dosage: 1MG TWICE PER DAY
  13. SINTROM [Concomitant]
     Dosage: .25UNIT PER DAY
  14. RAMIPRIL [Concomitant]

REACTIONS (1)
  - AGRANULOCYTOSIS [None]
